FAERS Safety Report 18774639 (Version 1)
Quarter: 2021Q1

REPORT INFORMATION
  Report Type: Spontaneous
  Country: CA (occurrence: CA)
  Receive Date: 20210122
  Receipt Date: 20210122
  Transmission Date: 20210419
  Serious: Yes (Hospitalization)
  Sender: FDA-Public Use
  Company Number: CA-ACCORD-214661

PATIENT
  Age: 6 Year
  Sex: Male

DRUGS (2)
  1. CYCLOPHOSPHAMIDE/CYCLOPHOSPHAMIDE MONOHYDRATE [Suspect]
     Active Substance: CYCLOPHOSPHAMIDE
     Route: 058
  2. CISPLATIN. [Suspect]
     Active Substance: CISPLATIN
     Dosage: SOLUTION INTRAVENOUS
     Route: 058

REACTIONS (2)
  - Febrile neutropenia [Unknown]
  - Abdominal infection [Unknown]
